FAERS Safety Report 10019645 (Version 4)
Quarter: 2014Q3

REPORT INFORMATION
  Report Type: Report from Study
  Country: US (occurrence: US)
  Receive Date: 20140318
  Receipt Date: 20140918
  Transmission Date: 20150326
  Serious: Yes (Death, Other)
  Sender: FDA-Public Use
  Company Number: US-ALEXION PHARMACEUTICALS INC.-A200700231

PATIENT

DRUGS (1)
  1. SOLIRIS [Suspect]
     Active Substance: ECULIZUMAB
     Indication: PAROXYSMAL NOCTURNAL HAEMOGLOBINURIA
     Dosage: UNK
     Route: 042
     Dates: start: 20071026

REACTIONS (11)
  - Dyspnoea [Recovered/Resolved]
  - Pain [Unknown]
  - Tenderness [Unknown]
  - Pharyngitis [Unknown]
  - Body temperature increased [Unknown]
  - Death [Fatal]
  - Headache [Unknown]
  - Nausea [Recovered/Resolved]
  - Nausea [Unknown]
  - Chest pain [Recovered/Resolved]
  - Vomiting [Unknown]

NARRATIVE: CASE EVENT DATE: 200711
